FAERS Safety Report 10503424 (Version 3)
Quarter: 2015Q3

REPORT INFORMATION
  Report Type: Report from Study
  Country: US (occurrence: US)
  Receive Date: 20141008
  Receipt Date: 20150921
  Transmission Date: 20151125
  Serious: Yes (Hospitalization, Other)
  Sender: FDA-Public Use
  Company Number: US-BIOGENIDEC-2014BI101481

PATIENT
  Age: 69 Year
  Sex: Female
  Weight: 44 kg

DRUGS (21)
  1. RISPERDAL [Concomitant]
     Active Substance: RISPERIDONE
     Route: 048
  2. SINGULAIR [Concomitant]
     Active Substance: MONTELUKAST SODIUM
     Route: 048
  3. ZOFRAN [Concomitant]
     Active Substance: ONDANSETRON HYDROCHLORIDE
     Route: 048
  4. AVONEX [Suspect]
     Active Substance: INTERFERON BETA-1A
     Indication: MULTIPLE SCLEROSIS
     Route: 030
     Dates: start: 201002
  5. ELAVIL [Concomitant]
     Active Substance: AMITRIPTYLINE HYDROCHLORIDE
     Route: 048
  6. ULTRAM [Concomitant]
     Active Substance: TRAMADOL HYDROCHLORIDE
     Route: 048
  7. ALBUTEROL. [Concomitant]
     Active Substance: ALBUTEROL
     Route: 048
  8. CELEXA [Concomitant]
     Active Substance: CITALOPRAM HYDROBROMIDE
     Route: 048
  9. MYRBETRIQ [Concomitant]
     Active Substance: MIRABEGRON
     Route: 048
  10. TRAZODONE [Concomitant]
     Active Substance: TRAZODONE HYDROCHLORIDE
     Indication: INSOMNIA
  11. ATROVENT [Concomitant]
     Active Substance: IPRATROPIUM BROMIDE
     Route: 048
  12. ALBUTEROL. [Concomitant]
     Active Substance: ALBUTEROL
     Route: 055
  13. KLONOPIN [Concomitant]
     Active Substance: CLONAZEPAM
     Route: 048
  14. ARICEPT [Concomitant]
     Active Substance: DONEPEZIL HYDROCHLORIDE
     Route: 048
  15. FENTANYL TRANSDERMAL SYSTEM [Concomitant]
     Active Substance: FENTANYL
     Indication: PAIN
  16. HYDROCODONE [Concomitant]
     Active Substance: HYDROCODONE
     Indication: PAIN
  17. SINEQUAN [Concomitant]
     Active Substance: DOXEPIN HYDROCHLORIDE
     Route: 048
  18. ATIVAN [Concomitant]
     Active Substance: LORAZEPAM
     Route: 048
  19. ANTIVERT [Concomitant]
     Active Substance: MECLIZINE HYDROCHLORIDE
     Route: 048
  20. NEURONTIN [Concomitant]
     Active Substance: GABAPENTIN
     Route: 048
  21. IMODIUM [Concomitant]
     Active Substance: LOPERAMIDE HYDROCHLORIDE
     Route: 048

REACTIONS (4)
  - Delirium [Recovered/Resolved]
  - Somnolence [Not Recovered/Not Resolved]
  - Intraductal proliferative breast lesion [Recovered/Resolved]
  - Memory impairment [Not Recovered/Not Resolved]

NARRATIVE: CASE EVENT DATE: 20100526
